FAERS Safety Report 6176900-1 (Version None)
Quarter: 2009Q2

REPORT INFORMATION
  Report Type: 
  Country: None (occurrence: None)
  Receive Date: 20090501
  Receipt Date: 20081204
  Transmission Date: 20091009
  Serious: Yes (Hospitalization)
  Sender: FDA-Public Use
  Company Number: US-ALEXION-A200800393

PATIENT

DRUGS (2)
  1. SOLIRIS [Suspect]
     Indication: PAROXYSMAL NOCTURNAL HAEMOGLOBINURIA
     Dosage: UNK, UNK
     Route: 042
     Dates: start: 20081105, end: 20081101
  2. SOLIRIS [Suspect]
     Dosage: UNK, UNK
     Route: 042
     Dates: start: 20081203

REACTIONS (7)
  - CATHETER SITE HAEMATOMA [None]
  - CATHETER SITE HAEMORRHAGE [None]
  - CATHETER SITE PAIN [None]
  - CATHETER SITE SWELLING [None]
  - INFECTION [None]
  - NEUTROPENIA [None]
  - PLATELET COUNT DECREASED [None]
